FAERS Safety Report 8042616 (Version 4)
Quarter: 2018Q4

REPORT INFORMATION
  Report Type: Spontaneous
  Country: DE (occurrence: DE)
  Receive Date: 20110718
  Receipt Date: 20181018
  Transmission Date: 20190205
  Serious: Yes (Hospitalization, Other)
  Sender: FDA-Public Use
  Company Number: DE-PFIZER INC-2011155464

PATIENT
  Age: 58 Year
  Sex: Male

DRUGS (16)
  1. SEROQUEL [Suspect]
     Active Substance: QUETIAPINE FUMARATE
     Dosage: 300 MG, DAILY
     Route: 048
     Dates: start: 20100602, end: 20100622
  2. SERTRALINE HCL [Suspect]
     Active Substance: SERTRALINE HYDROCHLORIDE
     Dosage: 50 MG, DAILY
     Route: 048
     Dates: start: 20100527, end: 20100608
  3. SERTRALINE HCL [Suspect]
     Active Substance: SERTRALINE HYDROCHLORIDE
     Dosage: 150 MG, DAILY
     Route: 048
     Dates: start: 20100708, end: 20100712
  4. SERTRALINE HCL [Suspect]
     Active Substance: SERTRALINE HYDROCHLORIDE
     Dosage: 200 MG, DAILY
     Route: 048
     Dates: start: 20100713, end: 20100804
  5. SEROQUEL [Suspect]
     Active Substance: QUETIAPINE FUMARATE
     Dosage: 400 - 600 MG, DAILY
     Route: 048
     Dates: start: 20100622, end: 20100627
  6. SEROQUEL [Suspect]
     Active Substance: QUETIAPINE FUMARATE
     Dosage: 600-100 MG/DAY
     Route: 048
     Dates: start: 20100805, end: 20100811
  7. DIAZEPAM. [Concomitant]
     Active Substance: DIAZEPAM
     Dosage: 5 MG, 1X/DAY
     Route: 048
     Dates: start: 20100716, end: 20100719
  8. SERTRALINE HCL [Suspect]
     Active Substance: SERTRALINE HYDROCHLORIDE
     Dosage: 100 MG, 1X/DAY
     Route: 048
     Dates: start: 20100807
  9. SEROQUEL [Suspect]
     Active Substance: QUETIAPINE FUMARATE
     Dosage: 200 - 600 MG, DAILY
     Route: 048
     Dates: start: 20100522, end: 20100602
  10. SEROQUEL [Suspect]
     Active Substance: QUETIAPINE FUMARATE
     Dosage: 800 MG, DAILY
     Route: 048
     Dates: start: 20100628, end: 20100804
  11. AKINETON [Suspect]
     Active Substance: BIPERIDEN HYDROCHLORIDE
     Dosage: 4 MG, DAILY
     Route: 048
     Dates: start: 20100710
  12. SERTRALINE HCL [Suspect]
     Active Substance: SERTRALINE HYDROCHLORIDE
     Dosage: 100 MG, DAILY
     Route: 048
     Dates: start: 20100609, end: 20100707
  13. SERTRALINE HCL [Suspect]
     Active Substance: SERTRALINE HYDROCHLORIDE
     Dosage: 150 MG, 1X/DAY
     Route: 048
     Dates: start: 20100805, end: 20100806
  14. AKINETON [Suspect]
     Active Substance: BIPERIDEN HYDROCHLORIDE
     Dosage: 2 MG, DAILY
     Route: 048
     Dates: start: 20100625, end: 20100709
  15. DIAZEPAM. [Concomitant]
     Active Substance: DIAZEPAM
     Dosage: 10 MG, 1X/DAY
     Route: 048
     Dates: start: 20100624, end: 20100715
  16. DIAZEPAM. [Concomitant]
     Active Substance: DIAZEPAM
     Dosage: 2.5 MG, 1X/DAY
     Route: 048
     Dates: start: 20100720, end: 20100804

REACTIONS (7)
  - Drug level increased [Recovered/Resolved]
  - Condition aggravated [Recovered/Resolved]
  - Tremor [Recovered/Resolved]
  - Drug level decreased [Unknown]
  - Disorientation [Recovered/Resolved]
  - Agitation [Recovered/Resolved]
  - Delirium [Recovered/Resolved]

NARRATIVE: CASE EVENT DATE: 20100525
